FAERS Safety Report 10314810 (Version 1)
Quarter: 2014Q3

REPORT INFORMATION
  Report Type: Spontaneous
  Country: US (occurrence: US)
  Receive Date: 20140718
  Receipt Date: 20140718
  Transmission Date: 20150326
  Serious: Yes (Other)
  Sender: FDA-Public Use
  Company Number: US-TEVA-494609USA

PATIENT
  Sex: Female

DRUGS (1)
  1. COPAXONE [Suspect]
     Active Substance: GLATIRAMER ACETATE
     Indication: MULTIPLE SCLEROSIS
     Dates: start: 20140101, end: 20140630

REACTIONS (5)
  - Throat tightness [Unknown]
  - Hypersensitivity [Unknown]
  - Injection site reaction [Unknown]
  - Multiple sclerosis relapse [Unknown]
  - Urticaria [Unknown]

NARRATIVE: CASE EVENT DATE: 2014
